FAERS Safety Report 16897694 (Version 1)
Quarter: 2019Q4

REPORT INFORMATION
  Report Type: Spontaneous
  Country: US (occurrence: US)
  Receive Date: 20191009
  Receipt Date: 20191009
  Transmission Date: 20200122
  Serious: No
  Sender: FDA-Public Use
  Company Number: US-009507513-1910USA005910

PATIENT
  Age: 37 Year
  Sex: Female

DRUGS (1)
  1. PROVENTIL [Suspect]
     Active Substance: ALBUTEROL
     Indication: ASTHMA
     Dosage: 2 DOSAGE FORM, Q4H (2 PUFFS 6 TIMES A DAY OR AS NEEDED)
     Dates: start: 20190910

REACTIONS (3)
  - Product quality issue [Not Recovered/Not Resolved]
  - Poor quality device used [Not Recovered/Not Resolved]
  - Product dose omission [Not Recovered/Not Resolved]

NARRATIVE: CASE EVENT DATE: 20191003
